FAERS Safety Report 19727532 (Version 2)
Quarter: 2021Q3

REPORT INFORMATION
  Report Type: Report from Study
  Country: ES (occurrence: ES)
  Receive Date: 20210820
  Receipt Date: 20210826
  Transmission Date: 20211014
  Serious: Yes (Hospitalization)
  Sender: FDA-Public Use
  Company Number: ES-ASTELLAS-2021US031277

PATIENT
  Age: 68 Year
  Sex: Female

DRUGS (2)
  1. PEMBROLIZUMAB. [Suspect]
     Active Substance: PEMBROLIZUMAB
     Indication: TRANSITIONAL CELL CARCINOMA
     Dosage: 200 MG, EVERY 3 WEEKS (DAY 1 OF EACH 3?WEEK CYCLE)
     Route: 042
     Dates: start: 20210608, end: 20210802
  2. ASG?22CE [Suspect]
     Active Substance: ENFORTUMAB VEDOTIN
     Indication: TRANSITIONAL CELL CARCINOMA
     Dosage: 1 MG/KG, CYCLIC (DAYS 1 AND 8 OF EVERY 3?WEEK CYCLE)
     Route: 042
     Dates: start: 20210608, end: 20210802

REACTIONS (1)
  - Respiratory tract infection [Recovered/Resolved]

NARRATIVE: CASE EVENT DATE: 20210810
